FAERS Safety Report 9210279 (Version 1)
Quarter: 2013Q2

REPORT INFORMATION
  Report Type: Spontaneous
  Country: US (occurrence: US)
  Receive Date: 20130404
  Receipt Date: 20130404
  Transmission Date: 20140414
  Serious: Yes (Hospitalization)
  Sender: FDA-Public Use
  Company Number: US-ELI_LILLY_AND_COMPANY-US201107005412

PATIENT
  Age: 73 Year
  Sex: Female

DRUGS (4)
  1. FORTEO [Suspect]
     Indication: OSTEOPOROSIS
     Dosage: 20 UG, QD
     Route: 058
  2. FORTEO [Suspect]
     Dosage: 20 UG, QD
     Route: 058
  3. CELEBREX [Concomitant]
  4. TYLENOL /00020001/ [Concomitant]

REACTIONS (11)
  - Pneumonia [Unknown]
  - Cystitis [Unknown]
  - Sepsis [Unknown]
  - Hordeolum [Recovered/Resolved]
  - Hordeolum [Recovering/Resolving]
  - Hepatic enzyme increased [Not Recovered/Not Resolved]
  - Local swelling [Recovering/Resolving]
  - Erythema [Recovering/Resolving]
  - Malaise [Unknown]
  - Fatigue [Unknown]
  - Sinusitis [Recovering/Resolving]
